FAERS Safety Report 7482743-9 (Version None)
Quarter: 2011Q2

REPORT INFORMATION
  Report Type: 
  Country: None (occurrence: None)
  Receive Date: 20110516
  Receipt Date: 20110504
  Transmission Date: 20111010
  Serious: Yes (Other)
  Sender: FDA-Public Use
  Company Number: CA-UCBSA-032282

PATIENT
  Sex: Female
  Weight: 95 kg

DRUGS (12)
  1. FOLIC ACID [Concomitant]
     Indication: RHEUMATOID ARTHRITIS
     Dosage: 5 DAYS PER WEEK
     Route: 048
     Dates: start: 20101122
  2. METHOTREXATE [Concomitant]
     Indication: RHEUMATOID ARTHRITIS
     Route: 058
     Dates: start: 20101122
  3. PLAQUENIL [Concomitant]
     Indication: RHEUMATOID ARTHRITIS
     Route: 048
     Dates: start: 20101122
  4. VALTREX [Concomitant]
     Indication: PROPHYLAXIS
     Route: 048
  5. VITAMIN B-12 [Concomitant]
     Indication: SUPPLEMENTATION THERAPY
     Dosage: 250-300 MG
     Route: 048
  6. MAGNESIUM [Concomitant]
     Indication: SUPPLEMENTATION THERAPY
     Route: 048
  7. TOPIRAMATE [Concomitant]
     Indication: MIGRAINE
     Route: 048
  8. NAPROSYN [Concomitant]
     Indication: RHEUMATOID ARTHRITIS
     Route: 048
  9. METFORMIN HCL [Concomitant]
     Indication: DIABETES MELLITUS
     Route: 048
  10. CIMZIA [Suspect]
     Indication: RHEUMATOID ARTHRITIS
     Route: 058
     Dates: start: 20110405, end: 20110504
  11. LIPITOR [Concomitant]
     Indication: HYPERCHOLESTEROLAEMIA
     Route: 048
  12. DIAMICRON MR [Concomitant]
     Indication: DIABETES MELLITUS
     Route: 048

REACTIONS (2)
  - OROPHARYNGEAL PAIN [None]
  - VULVOVAGINAL MYCOTIC INFECTION [None]
